FAERS Safety Report 24759034 (Version 1)
Quarter: 2024Q4

REPORT INFORMATION
  Report Type: Spontaneous
  Country: US (occurrence: US)
  Receive Date: 20241220
  Receipt Date: 20241220
  Transmission Date: 20250115
  Serious: No
  Sender: PHARMING GROUP
  Company Number: US-PHARMING-PHAUS2024001206

PATIENT

DRUGS (5)
  1. RUCONEST [Suspect]
     Active Substance: CONESTAT ALFA
     Indication: Hereditary angioedema
     Dosage: 4200 IU, TWICE A WEEK AND PRN
     Route: 058
     Dates: start: 201803
  2. RUCONEST [Suspect]
     Active Substance: CONESTAT ALFA
     Dosage: 4200 IU, TWICE A WEEK AND PRN
     Route: 058
     Dates: start: 201803
  3. RUCONEST [Suspect]
     Active Substance: CONESTAT ALFA
     Dosage: 4200 IU, TWICE A WEEK AND PRN
     Route: 058
     Dates: start: 201803
  4. RUCONEST [Suspect]
     Active Substance: CONESTAT ALFA
     Dosage: 4200 IU, TWICE A WEEK AND PRN
     Route: 058
     Dates: start: 201803
  5. RUCONEST [Suspect]
     Active Substance: CONESTAT ALFA
     Dosage: 4200 IU, TWICE A WEEK AND PRN
     Route: 058
     Dates: start: 201803

REACTIONS (4)
  - Oral pain [Unknown]
  - Sensitivity to weather change [Unknown]
  - Incorrect route of product administration [Unknown]
  - Intentional product use issue [Unknown]
